FAERS Safety Report 17281607 (Version 1)
Quarter: 2020Q1

REPORT INFORMATION
  Report Type: Spontaneous
  Country: US (occurrence: US)
  Receive Date: 20200117
  Receipt Date: 20200117
  Transmission Date: 20200409
  Serious: No
  Sender: FDA-Public Use
  Company Number: US-BEH-2020111510

PATIENT
  Age: 48 Year
  Sex: Female

DRUGS (1)
  1. HIZENTRA [Suspect]
     Active Substance: HUMAN IMMUNOGLOBULIN G
     Indication: IMMUNODEFICIENCY
     Dosage: 2 GRAM, QW
     Route: 058

REACTIONS (3)
  - Product prescribing issue [Unknown]
  - Influenza [Unknown]
  - Product dose omission [Unknown]

NARRATIVE: CASE EVENT DATE: 201912
